FAERS Safety Report 11179988 (Version 1)
Quarter: 2015Q2

REPORT INFORMATION
  Report Type: Spontaneous
  Country: US (occurrence: US)
  Receive Date: 20150611
  Receipt Date: 20150611
  Transmission Date: 20150821
  Serious: No
  Sender: FDA-Public Use
  Company Number: US-BAYER-2015-325373

PATIENT
  Age: 54 Year
  Sex: Female
  Weight: 61 kg

DRUGS (1)
  1. ALEVE [Suspect]
     Active Substance: NAPROXEN SODIUM
     Indication: ANALGESIC THERAPY
     Dosage: 1 DF, PRN
     Route: 048
     Dates: start: 2012, end: 2012

REACTIONS (1)
  - Blister [Recovered/Resolved]

NARRATIVE: CASE EVENT DATE: 2012
